FAERS Safety Report 4388156-0 (Version None)
Quarter: 2004Q2

REPORT INFORMATION
  Report Type: 
  Country: None (occurrence: None)
  Receive Date: 20040625
  Receipt Date: 20040614
  Transmission Date: 20050107
  Serious: Yes (Hospitalization)
  Sender: FDA-Public Use
  Company Number: US-SHR-04-021018

PATIENT
  Age: 45 Year
  Sex: Female
  Weight: 56.2 kg

DRUGS (5)
  1. BETASERON [Suspect]
     Indication: MULTIPLE SCLEROSIS
     Dosage: 8 MIU, EVERY 2D, SUBCUTANEOUS
     Route: 058
     Dates: start: 20020716, end: 20040116
  2. BACLOFEN [Concomitant]
  3. PROTONIX ^PHARMACIA^ (PANTOPRAZOLE) [Concomitant]
  4. MIRALAX (MICROGOL) [Concomitant]
  5. HORMONES AND RELATED AGENTS [Concomitant]

REACTIONS (4)
  - DIZZINESS [None]
  - FATIGUE [None]
  - INJECTION SITE PAIN [None]
  - NEUROPATHIC PAIN [None]
